FAERS Safety Report 9291242 (Version 2)
Quarter: 2013Q2

REPORT INFORMATION
  Report Type: Report from Study
  Country: US (occurrence: US)
  Receive Date: 20130515
  Receipt Date: 20130528
  Transmission Date: 20140414
  Serious: Yes (Hospitalization)
  Sender: FDA-Public Use
  Company Number: US-BAYER-2013-052963

PATIENT
  Age: 51 Year
  Sex: Male

DRUGS (2)
  1. STIVARGA [Suspect]
     Indication: GASTROINTESTINAL STROMAL TUMOUR
     Dosage: 160 MG, QD (4 TABLETS, DAILY)
     Route: 048
     Dates: start: 20130417, end: 20130426
  2. STIVARGA [Suspect]
     Indication: GASTROINTESTINAL STROMAL TUMOUR
     Dosage: 160 MG, QD
     Route: 048
     Dates: start: 20130515, end: 20130521

REACTIONS (7)
  - Tumour pain [Recovered/Resolved]
  - Miliaria [Not Recovered/Not Resolved]
  - Urinary tract pain [Recovered/Resolved]
  - Enterocolitis haemorrhagic [Recovered/Resolved]
  - Clostridium difficile colitis [Recovered/Resolved]
  - Gastric ulcer [Recovered/Resolved]
  - Frequent bowel movements [Not Recovered/Not Resolved]
